FAERS Safety Report 10096724 (Version 1)
Quarter: 2014Q2

REPORT INFORMATION
  Report Type: Spontaneous
  Country: DE (occurrence: JP)
  Receive Date: 20140422
  Receipt Date: 20140422
  Transmission Date: 20141212
  Serious: Yes (Hospitalization)
  Sender: FDA-Public Use
  Company Number: JP-FRI-1000066707

PATIENT
  Age: 81 Year
  Sex: Female
  Weight: 47.3 kg

DRUGS (9)
  1. MEMANTINE [Suspect]
     Indication: DEMENTIA
     Dosage: 5 MG
     Route: 048
     Dates: start: 20140204
  2. MEMANTINE [Suspect]
     Dosage: 10 MG
     Route: 048
  3. MEMANTINE [Suspect]
     Dosage: 15 MG
     Route: 048
  4. MEMANTINE [Suspect]
     Indication: DEMENTIA
     Dosage: 20 MG
     Route: 048
  5. ARICEPT D [Concomitant]
  6. CYMBALTA [Concomitant]
  7. BETANIS [Concomitant]
  8. TETRAMIDE [Concomitant]
  9. MYSLEE [Concomitant]

REACTIONS (1)
  - Depressed level of consciousness [Recovered/Resolved]
